FAERS Safety Report 19208878 (Version 1)
Quarter: 2021Q2

REPORT INFORMATION
  Report Type: Report from Study
  Country: US (occurrence: US)
  Receive Date: 20210503
  Receipt Date: 20210503
  Transmission Date: 20210717
  Serious: Yes (Hospitalization, Other)
  Sender: FDA-Public Use
  Company Number: US-BAYER-2020-283476

PATIENT
  Age: 52 Year
  Sex: Female

DRUGS (4)
  1. STIVARGA [Suspect]
     Active Substance: REGORAFENIB
     Indication: GASTROINTESTINAL STROMAL TUMOUR
     Dosage: 120 MG, QD
     Dates: start: 20201201, end: 20201210
  2. STIVARGA [Suspect]
     Active Substance: REGORAFENIB
     Indication: GASTROINTESTINAL STROMAL TUMOUR
     Dosage: 160 MG, QD FOR 21 DAYS ON 7 DAYS OFF
     Route: 048
     Dates: start: 20201211
  3. STIVARGA [Suspect]
     Active Substance: REGORAFENIB
     Indication: GASTROINTESTINAL STROMAL TUMOUR
     Dosage: DAILY DOSE 80 MG FOR 2 WEEKS ON AND WEEKS OFF
     Route: 048
     Dates: start: 202102
  4. STIVARGA [Suspect]
     Active Substance: REGORAFENIB
     Indication: GASTROINTESTINAL STROMAL TUMOUR
     Dosage: DAILY DOSE 80 MG
     Dates: start: 20210406

REACTIONS (40)
  - Neoplasm progression [Not Recovered/Not Resolved]
  - Blood pressure fluctuation [Recovering/Resolving]
  - Burning sensation [Recovering/Resolving]
  - Headache [Recovering/Resolving]
  - Tumour haemorrhage [Not Recovered/Not Resolved]
  - Oral pain [Not Recovered/Not Resolved]
  - Blood pressure increased [Not Recovered/Not Resolved]
  - Red blood cell count decreased [Recovering/Resolving]
  - Decreased appetite [Recovering/Resolving]
  - Epistaxis [Recovering/Resolving]
  - Sensitive skin [Unknown]
  - Fatigue [Not Recovered/Not Resolved]
  - Rash [Recovering/Resolving]
  - Pain in extremity [Not Recovered/Not Resolved]
  - Off label use [Recovered/Resolved]
  - Erythema [Recovering/Resolving]
  - Sensitive skin [Recovering/Resolving]
  - Gingival pain [Recovering/Resolving]
  - Pain in extremity [Recovering/Resolving]
  - Hyperkeratosis [Unknown]
  - Fatigue [Unknown]
  - Erythema [Unknown]
  - Diarrhoea [Recovering/Resolving]
  - Constipation [Recovering/Resolving]
  - Hypotension [Unknown]
  - Toothache [Not Recovered/Not Resolved]
  - Weight decreased [Recovering/Resolving]
  - Blood pressure measurement [Recovering/Resolving]
  - Pain in extremity [Recovering/Resolving]
  - Faeces discoloured [Unknown]
  - Haemoglobin decreased [Unknown]
  - Haemoglobin decreased [Recovering/Resolving]
  - Diarrhoea [Not Recovered/Not Resolved]
  - Dry mouth [Not Recovered/Not Resolved]
  - Abdominal pain upper [Recovering/Resolving]
  - Anaemia [Unknown]
  - Dizziness [Not Recovered/Not Resolved]
  - Decreased appetite [Not Recovered/Not Resolved]
  - Palpitations [Unknown]
  - Malaise [Unknown]

NARRATIVE: CASE EVENT DATE: 20201201
